FAERS Safety Report 7232822-6 (Version None)
Quarter: 2011Q1

REPORT INFORMATION
  Report Type: 
  Country: None (occurrence: None)
  Receive Date: 20110119
  Receipt Date: 20101228
  Transmission Date: 20110831
  Serious: Yes (Hospitalization, Other)
  Sender: FDA-Public Use
  Company Number: US-BAYER-2011-005034

PATIENT
  Sex: Female

DRUGS (3)
  1. YASMIN [Suspect]
     Indication: PRODUCT USED FOR UNKNOWN INDICATION
  2. VICODIN [Concomitant]
     Indication: ADNEXA UTERI PAIN
  3. ACETAMINOPHEN [Concomitant]
     Indication: ADNEXA UTERI PAIN

REACTIONS (1)
  - PULMONARY EMBOLISM [None]
